FAERS Safety Report 8399261-6 (Version None)
Quarter: 2012Q1

REPORT INFORMATION
  Report Type: 
  Country: None (occurrence: None)
  Receive Date: 20120323
  Receipt Date: 20110104
  Transmission Date: 20120608
  Serious: Yes (Other)
  Sender: FDA-Public Use
  Company Number: 163-21880-11010746

PATIENT
  Age: 66 Year
  Sex: Female
  Weight: 88.4514 kg

DRUGS (10)
  1. VALACYCLOVIR [Concomitant]
  2. BUPROPION HCL [Concomitant]
  3. DIPHENOXYLATE (DIPHENOXYLATE) [Concomitant]
  4. ZOLPIDEM [Concomitant]
  5. GABAPENTIN [Concomitant]
  6. OXYCODONE HCL [Concomitant]
  7. OMEPRAZOLE [Concomitant]
  8. REVLIMID [Suspect]
     Indication: MULTIPLE MYELOMA
     Dosage: 10 MG, 1 IN 1 D, PO
     Route: 048
     Dates: start: 20100310
  9. AMOXCLAV (AMOXI-CLAVULANICO) [Concomitant]
  10. ALPRAZOLAM [Concomitant]

REACTIONS (2)
  - PLATELET COUNT DECREASED [None]
  - DIARRHOEA [None]
